FAERS Safety Report 5787751-1 (Version None)
Quarter: 2008Q2

REPORT INFORMATION
  Report Type: 
  Country: None (occurrence: None)
  Receive Date: 20080625
  Receipt Date: 20080613
  Transmission Date: 20081010
  Serious: Yes (Life-Threatening, Hospitalization, Other)
  Sender: FDA-Public Use
  Company Number: BG-ELI_LILLY_AND_COMPANY-BG200806003364

PATIENT
  Sex: Female
  Weight: 130 kg

DRUGS (4)
  1. ZYPREXA [Suspect]
     Indication: SCHIZOPHRENIA
     Dosage: 20 MG, 2/D
     Route: 030
     Dates: start: 20080516, end: 20080522
  2. ZYPREXA [Suspect]
     Dosage: 10 MG, DAILY (1/D)
     Route: 030
     Dates: start: 20080523, end: 20080529
  3. DIAZEPAM [Concomitant]
     Indication: SEDATION
     Dosage: 30 MG, 2/D
     Dates: start: 20080516
  4. PROPOFOL [Concomitant]
     Indication: ELECTROCONVULSIVE THERAPY
     Dosage: 50 MG, AS NEEDED

REACTIONS (4)
  - BLOOD CREATINE PHOSPHOKINASE INCREASED [None]
  - BRONCHOPNEUMONIA [None]
  - NEUROLEPTIC MALIGNANT SYNDROME [None]
  - OVERDOSE [None]
